FAERS Safety Report 4388293-0 (Version None)
Quarter: 2004Q2

REPORT INFORMATION
  Report Type: 
  Country: None (occurrence: None)
  Receive Date: 20040625
  Receipt Date: 20040611
  Transmission Date: 20050107
  Serious: No
  Sender: FDA-Public Use
  Company Number: F04200400184

PATIENT
  Age: 72 Year
  Sex: Male

DRUGS (1)
  1. UROXATRAL [Suspect]
     Indication: BENIGN PROSTATIC HYPERPLASIA
     Dosage: 10 MG OD ORAL
     Route: 048
     Dates: start: 20040202, end: 20040302

REACTIONS (1)
  - ARRHYTHMIA [None]
